FAERS Safety Report 7512264-6 (Version None)
Quarter: 2011Q2

REPORT INFORMATION
  Report Type: 
  Country: None (occurrence: None)
  Receive Date: 20110531
  Receipt Date: 20110517
  Transmission Date: 20111010
  Serious: Yes (Other)
  Sender: FDA-Public Use
  Company Number: PHHY2011US42237

PATIENT
  Sex: Female

DRUGS (9)
  1. SERTRALINE HYDROCHLORIDE [Concomitant]
     Dosage: 100 MG, QD
  2. OMEPRAZOLE [Concomitant]
  3. RECLAST [Suspect]
     Dates: start: 20101001
  4. ASPIRIN [Concomitant]
     Dosage: 81 MG, UNK
  5. TRAZODONE HCL [Concomitant]
     Dosage: 200 MG, UNK
  6. VENLAFAXINE [Concomitant]
     Dosage: 75 MG, BID
  7. PRAVASTATIN [Concomitant]
     Dosage: 40 MG, QD
  8. HYDROCODONE BITARTRATE AND ACETAMINOPHEN [Concomitant]
     Dosage: 7.5/500
  9. IBUPROFEN [Concomitant]
     Dosage: 800 MG, BID

REACTIONS (11)
  - GROIN PAIN [None]
  - ARTHRALGIA [None]
  - DYSSTASIA [None]
  - MYALGIA [None]
  - BONE PAIN [None]
  - PAIN IN EXTREMITY [None]
  - FALL [None]
  - MUSCULAR WEAKNESS [None]
  - DEPRESSION [None]
  - HYPOKINESIA [None]
  - BALANCE DISORDER [None]
